FAERS Safety Report 6085957-8 (Version None)
Quarter: 2009Q1

REPORT INFORMATION
  Report Type: 
  Country: None (occurrence: None)
  Receive Date: 20090220
  Receipt Date: 20090120
  Transmission Date: 20090719
  Serious: No
  Sender: FDA-Public Use
  Company Number: US-BAYER-200911447NA

PATIENT
  Age: 80 Year
  Sex: Female

DRUGS (1)
  1. CIPRO [Suspect]
     Indication: URETHRAL DILATION PROCEDURE

REACTIONS (1)
  - TENDON PAIN [None]
